FAERS Safety Report 9119362 (Version 5)
Quarter: 2014Q1

REPORT INFORMATION
  Report Type: Report from Study
  Country: FR (occurrence: FR)
  Receive Date: 20130226
  Receipt Date: 20140331
  Transmission Date: 20141002
  Serious: Yes (Hospitalization, Other)
  Sender: FDA-Public Use
  Company Number: FR-MILLENNIUM PHARMACEUTICALS, INC.-2013-01385

PATIENT
  Sex: 0

DRUGS (12)
  1. VELCADE [Suspect]
     Indication: PLASMA CELL MYELOMA
     Dosage: 1.3 MG/M2, UNK
     Route: 042
     Dates: start: 20121120, end: 20130212
  2. DEXAMETHASONE [Suspect]
     Indication: PLASMA CELL MYELOMA
     Dosage: 20 MG, UNK
     Route: 048
     Dates: start: 20121120, end: 20130202
  3. CYCLOPHOSPHAMIDE [Suspect]
     Indication: PLASMA CELL MYELOMA
     Dosage: 750 MG/M2, UNK
     Route: 042
     Dates: start: 20121120, end: 20130212
  4. ZELITREX                           /01269701/ [Concomitant]
     Indication: INFECTION PROPHYLAXIS
     Dosage: 500 MG, UNK
     Route: 048
     Dates: start: 20121120
  5. BACTRIM [Concomitant]
  6. TRAVATAN [Concomitant]
  7. CRESTOR [Concomitant]
  8. PIASCLEDINE                        /00809501/ [Concomitant]
  9. SOLUMEDROL [Concomitant]
  10. BISPHOSPHONATES [Concomitant]
  11. PAMIDRONATE DISODIUM [Concomitant]
  12. ORACILLINE                         /00001801/ [Concomitant]

REACTIONS (1)
  - Kaposi^s sarcoma [Not Recovered/Not Resolved]
